FAERS Safety Report 20237530 (Version 4)
Quarter: 2022Q3

REPORT INFORMATION
  Report Type: Spontaneous
  Country: US (occurrence: US)
  Receive Date: 20211228
  Receipt Date: 20220804
  Transmission Date: 20221027
  Serious: Yes (Life-Threatening, Hospitalization, Other)
  Sender: FDA-Public Use
  Company Number: US-PFIZER INC-202101211908

PATIENT
  Age: 46 Year
  Sex: Female

DRUGS (4)
  1. XELJANZ [Suspect]
     Active Substance: TOFACITINIB CITRATE
     Indication: Rheumatoid arthritis
     Dosage: 5 MG, 2X/DAY
     Route: 048
     Dates: start: 20210725, end: 20210915
  2. XELJANZ [Suspect]
     Active Substance: TOFACITINIB CITRATE
     Dosage: 5 MG, 2X/DAY
     Route: 048
     Dates: start: 20220221
  3. PREDNISONE [Concomitant]
     Active Substance: PREDNISONE
     Dosage: 5 MG, 1X/DAY
  4. NUCALA [Concomitant]
     Active Substance: MEPOLIZUMAB
     Indication: Pneumonitis
     Dosage: UNK

REACTIONS (15)
  - COVID-19 [Recovering/Resolving]
  - Infection [Unknown]
  - Pneumonitis [Unknown]
  - Dyspepsia [Unknown]
  - Speech disorder [Unknown]
  - Middle insomnia [Unknown]
  - Memory impairment [Unknown]
  - Asthenia [Unknown]
  - Sinusitis [Unknown]
  - Crying [Unknown]
  - Mental disorder [Unknown]
  - Condition aggravated [Unknown]
  - Aphasia [Unknown]
  - Arthralgia [Unknown]
  - Product dose omission issue [Unknown]

NARRATIVE: CASE EVENT DATE: 20210101
